FAERS Safety Report 10170513 (Version 3)
Quarter: 2014Q3

REPORT INFORMATION
  Report Type: Spontaneous
  Country: GB (occurrence: GB)
  Receive Date: 20140513
  Receipt Date: 20140725
  Transmission Date: 20150326
  Serious: Yes (Life-Threatening, Hospitalization, Other)
  Sender: FDA-Public Use
  Company Number: PHHY2013GB144067

PATIENT
  Age: 7 Year
  Sex: Male

DRUGS (4)
  1. TEGRETOL [Suspect]
     Active Substance: CARBAMAZEPINE
     Indication: EPILEPSY
     Dosage: 5 ML, QD
     Route: 048
     Dates: start: 20131122
  2. SERETIDE [Concomitant]
     Active Substance: FLUTICASONE FUROATE\SALMETEROL XINAFOATE
     Indication: ASTHMA
     Dosage: UNK UKN, UNK
  3. TEGRETOL [Suspect]
     Active Substance: CARBAMAZEPINE
     Dosage: UNK UKN, BID
     Route: 048
     Dates: end: 20131205
  4. MONTELUKAST [Concomitant]
     Active Substance: MONTELUKAST SODIUM
     Indication: ASTHMA
     Dosage: UNK UKN, UNK

REACTIONS (14)
  - Onychomadesis [Unknown]
  - Mucous membrane disorder [Not Recovered/Not Resolved]
  - Headache [Unknown]
  - Skin exfoliation [Unknown]
  - Nasopharyngitis [Unknown]
  - Rash [Unknown]
  - Cell death [Unknown]
  - Blister [Recovered/Resolved with Sequelae]
  - Hypothermia [Unknown]
  - Systemic inflammatory response syndrome [Not Recovered/Not Resolved]
  - Pain [Unknown]
  - Dyspnoea [Unknown]
  - Toxic epidermal necrolysis [Recovered/Resolved with Sequelae]
  - Lung infection [Unknown]

NARRATIVE: CASE EVENT DATE: 20131203
